FAERS Safety Report 5736206-9 (Version None)
Quarter: 2008Q2

REPORT INFORMATION
  Report Type: 
  Country: None (occurrence: None)
  Receive Date: 20080513
  Receipt Date: 20080505
  Transmission Date: 20081010
  Serious: Yes (Other)
  Sender: FDA-Public Use
  Company Number: US-SANOFI-SYNTHELABO-F03200800063

PATIENT
  Age: 63 Year
  Sex: Female

DRUGS (4)
  1. FLUOROURACIL [Suspect]
     Indication: COLON CANCER
     Dosage: 400 MG/M2 FOLLOWED BY 2400 MG/M2 CONTINUOUS IV EVERY 2 WEEKS
     Route: 042
  2. LEUCOVORIN CALCIUM [Suspect]
     Indication: COLON CANCER
     Route: 042
  3. ERBITUX [Suspect]
     Indication: COLON CANCER
     Route: 042
  4. ELOXATIN [Suspect]
     Indication: COLON CANCER
     Route: 042

REACTIONS (1)
  - TINNITUS [None]
